FAERS Safety Report 22036849 (Version 7)
Quarter: 2023Q4

REPORT INFORMATION
  Report Type: Report from Study
  Country: US (occurrence: US)
  Receive Date: 20230225
  Receipt Date: 20231003
  Transmission Date: 20240109
  Serious: No
  Sender: FDA-Public Use
  Company Number: US-002147023-NVSC2023US043614

PATIENT

DRUGS (1)
  1. KESIMPTA [Suspect]
     Active Substance: OFATUMUMAB
     Indication: Product used for unknown indication
     Dosage: UNK
     Route: 065
     Dates: start: 20230212

REACTIONS (5)
  - Fatigue [Not Recovered/Not Resolved]
  - Rhinorrhoea [Unknown]
  - Headache [Unknown]
  - Pain [Unknown]
  - Blood cholesterol increased [Unknown]
